FAERS Safety Report 8053298-5 (Version None)
Quarter: 2012Q1

REPORT INFORMATION
  Report Type: 
  Country: None (occurrence: None)
  Receive Date: 20120118
  Receipt Date: 20120110
  Transmission Date: 20120608
  Serious: Yes (Hospitalization)
  Sender: FDA-Public Use
  Company Number: US-ROCHE-1029350

PATIENT
  Sex: Male

DRUGS (3)
  1. KLONOPIN [Suspect]
     Indication: PANIC ATTACK
  2. NORCO [Concomitant]
     Indication: PAIN
  3. METHADONE HCL [Concomitant]
     Indication: PAIN

REACTIONS (8)
  - EATING DISORDER [None]
  - PAIN [None]
  - APHAGIA [None]
  - FEELING ABNORMAL [None]
  - DEHYDRATION [None]
  - HALLUCINATION [None]
  - DYSPNOEA [None]
  - UNEVALUABLE EVENT [None]
